FAERS Safety Report 9371187 (Version 1)
Quarter: 2013Q2

REPORT INFORMATION
  Report Type: Spontaneous
  Country: BR (occurrence: BR)
  Receive Date: 20130627
  Receipt Date: 20130627
  Transmission Date: 20140414
  Serious: Yes (Hospitalization)
  Sender: FDA-Public Use
  Company Number: BR-ROCHE-1238227

PATIENT
  Sex: Female
  Weight: 62 kg

DRUGS (4)
  1. RIVOTRIL [Suspect]
     Indication: DEPRESSION
     Dosage: HALF TABLET IN THE MORNING AND HALF TABLET IN THE EVENING
     Route: 065
  2. DILTIAZEM HYDROCHLORIDE [Concomitant]
     Route: 065
  3. BENICAR [Concomitant]
     Route: 065
  4. VALSARTAN [Concomitant]
     Route: 065

REACTIONS (6)
  - Gingival pain [Not Recovered/Not Resolved]
  - Gingival erythema [Not Recovered/Not Resolved]
  - Swelling face [Not Recovered/Not Resolved]
  - Dry mouth [Not Recovered/Not Resolved]
  - Oral discomfort [Not Recovered/Not Resolved]
  - Spinal disorder [Unknown]
